FAERS Safety Report 9789478 (Version 2)
Quarter: 2014Q2

REPORT INFORMATION
  Report Type: Report from Study
  Country: JP (occurrence: JP)
  Receive Date: 20131231
  Receipt Date: 20140612
  Transmission Date: 20141212
  Serious: Yes (Death)
  Sender: FDA-Public Use
  Company Number: JP-ROCHE-1327462

PATIENT
  Sex: Female
  Weight: 53 kg

DRUGS (21)
  1. OMALIZUMAB [Suspect]
     Indication: ASTHMA
     Route: 058
     Dates: start: 20091023
  2. INTAL [Concomitant]
     Route: 065
     Dates: start: 20091030
  3. TEGRETOL [Concomitant]
     Route: 065
     Dates: start: 20091230
  4. ADOAIR [Concomitant]
     Route: 065
     Dates: start: 20090417, end: 20100218
  5. SYMBICORT [Concomitant]
     Route: 065
     Dates: start: 20100219
  6. QVAR [Concomitant]
     Route: 065
     Dates: start: 20090417
  7. ONON [Concomitant]
     Route: 065
     Dates: start: 20090417
  8. THEOPHYLLINE [Concomitant]
     Route: 065
     Dates: start: 20090417, end: 20100201
  9. THEODUR [Concomitant]
     Route: 065
     Dates: start: 20090417, end: 20100201
  10. THEODUR [Concomitant]
     Route: 065
     Dates: start: 20100202
  11. PREDNISOLONE [Concomitant]
     Route: 065
     Dates: start: 20090417
  12. PREDNISOLONE [Concomitant]
     Route: 065
  13. PREDNISOLONE [Concomitant]
     Route: 065
  14. SULTANOL [Concomitant]
     Route: 065
     Dates: start: 20090417
  15. AMLODIN [Concomitant]
     Route: 065
     Dates: start: 20091030
  16. METHYCOBAL [Concomitant]
     Route: 065
     Dates: start: 20091030
  17. CALCIUM LACTATE [Concomitant]
     Route: 065
     Dates: start: 20091030
  18. ZANTAC [Concomitant]
     Route: 065
     Dates: start: 20091030
  19. ONEALFA [Concomitant]
     Route: 065
     Dates: start: 20091030
  20. MUCOSTA [Concomitant]
     Route: 065
     Dates: start: 20091030
  21. BONALON [Concomitant]
     Route: 065
     Dates: start: 20091023

REACTIONS (1)
  - Myocardial infarction [Fatal]
